FAERS Safety Report 7026075-1 (Version None)
Quarter: 2010Q4

REPORT INFORMATION
  Report Type: 
  Country: None (occurrence: None)
  Receive Date: 20101004
  Receipt Date: 20100924
  Transmission Date: 20110411
  Serious: No
  Sender: FDA-Public Use
  Company Number: US-BIOGENIDEC-2010BI033720

PATIENT
  Age: 55 Year
  Sex: Female

DRUGS (3)
  1. TYSABRI [Suspect]
     Indication: MULTIPLE SCLEROSIS
     Route: 042
     Dates: start: 20100922
  2. AVONEX [Concomitant]
     Indication: MULTIPLE SCLEROSIS
     Route: 030
     Dates: start: 19961015, end: 20090109
  3. AVONEX [Concomitant]
     Route: 030
     Dates: start: 20100901, end: 20100901

REACTIONS (4)
  - HEADACHE [None]
  - HYPERHIDROSIS [None]
  - INFUSION SITE PAIN [None]
  - PYREXIA [None]
